FAERS Safety Report 6543054-9 (Version None)
Quarter: 2010Q1

REPORT INFORMATION
  Report Type: 
  Country: None (occurrence: None)
  Receive Date: 20100114
  Receipt Date: 20091230
  Transmission Date: 20100710
  Serious: Yes (Other)
  Sender: FDA-Public Use
  Company Number: 1000010857

PATIENT
  Age: 2 Hour
  Sex: Female

DRUGS (1)
  1. CITALOPRAM HYDROBROMIDE [Suspect]
     Dosage: TRANSPLACENTAL
     Route: 064

REACTIONS (6)
  - CRYING [None]
  - ENLARGED CLITORIS [None]
  - FEEDING DISORDER OF INFANCY OR EARLY CHILDHOOD [None]
  - IRRITABILITY [None]
  - MATERNAL DRUGS AFFECTING FOETUS [None]
  - NEONATAL DISORDER [None]
